FAERS Safety Report 14398320 (Version 3)
Quarter: 2018Q3

REPORT INFORMATION
  Report Type: Spontaneous
  Country: US (occurrence: US)
  Receive Date: 20180116
  Receipt Date: 20180911
  Transmission Date: 20181010
  Serious: No
  Sender: FDA-Public Use
  Company Number: US-GLAXOSMITHKLINE-US2018003311

PATIENT
  Sex: Female

DRUGS (1)
  1. VENTOLIN HFA [Suspect]
     Active Substance: ALBUTEROL SULFATE
     Indication: RESPIRATORY TRACT INFECTION
     Dosage: 2 PUFF(S), PRN
     Route: 048
     Dates: start: 20180106

REACTIONS (2)
  - Off label use [Unknown]
  - Product label confusion [Unknown]

NARRATIVE: CASE EVENT DATE: 20180106
